FAERS Safety Report 9192781 (Version 1)
Quarter: 2013Q1

REPORT INFORMATION
  Report Type: Spontaneous
  Country: FR (occurrence: FR)
  Receive Date: 20130327
  Receipt Date: 20130327
  Transmission Date: 20140127
  Serious: Yes (Hospitalization)
  Sender: FDA-Public Use
  Company Number: FR-PFIZER INC-2013093932

PATIENT
  Age: 40 Year
  Sex: Male

DRUGS (6)
  1. REVATIO [Suspect]
     Dosage: 1 MG DAILY
     Route: 048
     Dates: start: 200912
  2. REVATIO [Suspect]
     Dosage: 1.5 MG DAILY
     Route: 048
  3. REVATIO [Suspect]
     Dosage: 2 MG DAILY
     Route: 048
  4. REVATIO [Suspect]
     Dosage: 3 MG, 1X/DAY
     Route: 048
     Dates: end: 20110113
  5. REVATIO [Suspect]
     Dosage: 1 MG DAILY
     Route: 048
     Dates: start: 20130114
  6. TRIATEC [Concomitant]
     Dosage: UNK
     Route: 048
     Dates: end: 201010

REACTIONS (3)
  - Face oedema [Recovered/Resolved]
  - Paraesthesia [Recovered/Resolved]
  - Headache [Recovered/Resolved]
